FAERS Safety Report 8790287 (Version 1)
Quarter: 2012Q4

REPORT INFORMATION
  Report Type: 
  Country: US (occurrence: US)
  Receive Date: 20120917
  Receipt Date: 20120917
  Transmission Date: 20130627
  Serious: Yes (Other)
  Sender: FDA-Public Use
  Company Number: US-BAYER-2012-096001

PATIENT
  Age: 23 Year
  Sex: Female
  Weight: 68.03 kg

DRUGS (5)
  1. YAZ [Suspect]
     Indication: CONTRACEPTION
  2. YAZ [Suspect]
     Indication: MENSTRUAL CYCLE MANAGEMENT
  3. ALEVE [Concomitant]
     Indication: LIGAMENT SPRAIN
  4. VOLTAREN [Concomitant]
     Dosage: 75 mg, BID
  5. VICODIN [Concomitant]
     Indication: PAIN

REACTIONS (1)
  - Deep vein thrombosis [None]
